FAERS Safety Report 16206462 (Version 1)
Quarter: 2019Q2

REPORT INFORMATION
  Report Type: Spontaneous
  Country: NL (occurrence: NL)
  Receive Date: 20190417
  Receipt Date: 20190417
  Transmission Date: 20190711
  Serious: Yes (Hospitalization)
  Sender: FDA-Public Use
  Company Number: NL-TEVA-2019-NL-1038848

PATIENT
  Sex: Male

DRUGS (1)
  1. OXAZEPAM 10MG [Suspect]
     Active Substance: OXAZEPAM
     Indication: STRESS
     Dosage: 4DD10MG,
     Dates: start: 2008

REACTIONS (3)
  - Abnormal behaviour [Recovering/Resolving]
  - Confusional state [Recovering/Resolving]
  - Fall [Recovering/Resolving]
